FAERS Safety Report 9801447 (Version 3)
Quarter: 2014Q1

REPORT INFORMATION
  Report Type: Spontaneous
  Country: JP (occurrence: JP)
  Receive Date: 20140107
  Receipt Date: 20140211
  Transmission Date: 20141002
  Serious: Yes (Hospitalization)
  Sender: FDA-Public Use
  Company Number: JP-PFIZER INC-2014003515

PATIENT
  Age: 86 Year
  Sex: Female

DRUGS (1)
  1. CABASER [Suspect]
     Dosage: UNK
     Route: 048

REACTIONS (1)
  - Fracture [Recovered/Resolved]
